FAERS Safety Report 5946530-2 (Version None)
Quarter: 2008Q4

REPORT INFORMATION
  Report Type: 
  Country: None (occurrence: None)
  Receive Date: 20081110
  Receipt Date: 20081031
  Transmission Date: 20090506
  Serious: Yes (Other)
  Sender: FDA-Public Use
  Company Number: B0544466A

PATIENT
  Age: 27 Year
  Sex: Male

DRUGS (2)
  1. ARRANON [Suspect]
     Dosage: 2250MG PER DAY
     Route: 042
     Dates: start: 20081011, end: 20081015
  2. PREDONINE [Concomitant]
     Dates: start: 20081001

REACTIONS (1)
  - LIVER FUNCTION TEST ABNORMAL [None]
